FAERS Safety Report 13554871 (Version 11)
Quarter: 2019Q1

REPORT INFORMATION
  Report Type: Spontaneous
  Country: US (occurrence: US)
  Receive Date: 20170517
  Receipt Date: 20190329
  Transmission Date: 20190417
  Serious: Yes (Hospitalization)
  Sender: FDA-Public Use
  Company Number: US-ACTELION-A-US2017-153904

PATIENT
  Age: 53 Year
  Sex: Male
  Weight: 94.79 kg

DRUGS (6)
  1. ORENITRAM [Suspect]
     Active Substance: TREPROSTINIL
     Dosage: 5 MG, TID
     Route: 065
  2. REVATIO [Concomitant]
     Active Substance: SILDENAFIL CITRATE
  3. ORENITRAM [Suspect]
     Active Substance: TREPROSTINIL
     Indication: PRODUCT USED FOR UNKNOWN INDICATION
     Dosage: UNK
     Route: 065
  4. TRACLEER [Suspect]
     Active Substance: BOSENTAN
     Indication: PULMONARY ARTERIAL HYPERTENSION
     Dosage: 125 MG, BID
     Route: 048
  5. TRACLEER [Suspect]
     Active Substance: BOSENTAN
     Dosage: UNK
     Route: 048
  6. ORENITRAM [Suspect]
     Active Substance: TREPROSTINIL
     Dosage: 5 MG, BID
     Route: 065

REACTIONS (16)
  - Myalgia [Unknown]
  - Fluid overload [Unknown]
  - Atrial fibrillation [Unknown]
  - Dyspnoea [Unknown]
  - Flushing [Unknown]
  - Perforated ulcer [Unknown]
  - Dyspepsia [Recovering/Resolving]
  - Swelling [Unknown]
  - Abdominal distension [Unknown]
  - Oedema peripheral [Unknown]
  - Drug intolerance [Unknown]
  - Diarrhoea [Recovering/Resolving]
  - Catheterisation cardiac [Unknown]
  - Appetite disorder [Unknown]
  - Abdominal discomfort [Unknown]
  - Dizziness [Recovering/Resolving]

NARRATIVE: CASE EVENT DATE: 20180615
